FAERS Safety Report 16373578 (Version 2)
Quarter: 2020Q2

REPORT INFORMATION
  Report Type: Spontaneous
  Country: ES (occurrence: ES)
  Receive Date: 20190530
  Receipt Date: 20200630
  Transmission Date: 20200713
  Serious: Yes (Hospitalization, Other)
  Sender: FDA-Public Use
  Company Number: ES-TEVA-2019-ES-1054685

PATIENT
  Age: 86 Year
  Sex: Female

DRUGS (1)
  1. OLMESARTAN 40 MG [Suspect]
     Active Substance: OLMESARTAN
     Indication: HYPERTENSION
     Route: 048

REACTIONS (5)
  - Colitis [Recovering/Resolving]
  - Prerenal failure [Recovering/Resolving]
  - Metabolic acidosis [Recovering/Resolving]
  - Enteritis [Recovering/Resolving]
  - Gastrointestinal disorder [Recovering/Resolving]
